FAERS Safety Report 4939123-7 (Version None)
Quarter: 2006Q1

REPORT INFORMATION
  Report Type: 
  Country: None (occurrence: None)
  Receive Date: 20060306
  Receipt Date: 20060222
  Transmission Date: 20060701
  Serious: Yes (Hospitalization, Other)
  Sender: FDA-Public Use
  Company Number: 2005103691

PATIENT
  Age: 31 Year
  Sex: Female

DRUGS (3)
  1. DEPO-PROVERA [Suspect]
     Indication: CONTRACEPTION
     Dosage: SEE IMAGE
     Dates: start: 20050216, end: 20050216
  2. DEPO-PROVERA [Suspect]
     Indication: CONTRACEPTION
     Dosage: SEE IMAGE
     Dates: start: 20051026, end: 20051026
  3. CEFALIUM (CAFFEINE, DIHYDROERGOTAMINE MESILATE, METOCLOPRAMIDE, PARACE [Suspect]
     Indication: MIGRAINE
     Dosage: ORAL
     Route: 048

REACTIONS (8)
  - AMENORRHOEA [None]
  - DEPRESSION [None]
  - GALLBLADDER OPERATION [None]
  - MENORRHAGIA [None]
  - MIGRAINE [None]
  - OEDEMA [None]
  - POST PROCEDURAL COMPLICATION [None]
  - STRESS [None]
